FAERS Safety Report 4662270-4 (Version None)
Quarter: 2005Q2

REPORT INFORMATION
  Report Type: 
  Country: None (occurrence: None)
  Receive Date: 20050512
  Receipt Date: 20050427
  Transmission Date: 20051028
  Serious: Yes (Death, Other)
  Sender: FDA-Public Use
  Company Number: 2005S1000077

PATIENT
  Age: 47 Year
  Sex: Female

DRUGS (6)
  1. CUBICIN [Suspect]
     Indication: BACTERAEMIA
     Dosage: 8 MG/KG; Q24H; IV
     Route: 042
     Dates: start: 20050408, end: 20050422
  2. CUBICIN [Suspect]
     Indication: ENTEROCOCCAL INFECTION
     Dosage: 8 MG/KG; Q24H; IV
     Route: 042
     Dates: start: 20050408, end: 20050422
  3. VANCOMYCIN [Concomitant]
  4. STREPTOMYCIN [Concomitant]
  5. SYNERCID [Concomitant]
  6. CEFEPIME [Concomitant]

REACTIONS (4)
  - CREATININE RENAL CLEARANCE DECREASED [None]
  - HAEMORRHAGE INTRACRANIAL [None]
  - MENINGITIS ENTEROCOCCAL [None]
  - PATHOGEN RESISTANCE [None]
